FAERS Safety Report 5726935-5 (Version None)
Quarter: 2008Q2

REPORT INFORMATION
  Report Type: 
  Country: None (occurrence: None)
  Receive Date: 20080502
  Receipt Date: 20080424
  Transmission Date: 20081010
  Serious: Yes (Death, Life-Threatening, Hospitalization)
  Sender: FDA-Public Use
  Company Number: FR-PFIZER INC-2008036702

PATIENT
  Sex: Male

DRUGS (7)
  1. TAHOR [Suspect]
     Route: 048
     Dates: start: 20080103, end: 20080106
  2. PREVISCAN [Suspect]
     Route: 048
     Dates: start: 20080102, end: 20080103
  3. ASPIRIN [Suspect]
     Route: 048
     Dates: start: 20080104, end: 20080106
  4. CONTRAMAL [Suspect]
     Route: 048
     Dates: start: 20080103, end: 20080106
  5. SYMBICORT [Suspect]
     Dosage: TEXT:200/6UG-FREQ:1 PUFF DAILY EVERY DAY
     Route: 055
     Dates: start: 20080103, end: 20080107
  6. LASILIX [Suspect]
     Route: 048
     Dates: start: 20080104, end: 20080107
  7. CORDARONE [Suspect]
     Route: 048
     Dates: start: 20080106, end: 20080107

REACTIONS (2)
  - ANAEMIA [None]
  - HAEMATOMA [None]
